FAERS Safety Report 9506306 (Version 1)
Quarter: 2013Q1

REPORT INFORMATION
  Report Type: Spontaneous
  Country: US (occurrence: None)
  Receive Date: 20130301
  Receipt Date: 20130301
  Transmission Date: 20140127
  Serious: Yes (Hospitalization, Other)
  Sender: FDA-Public Use
  Company Number: RB-48099-2012

PATIENT
  Sex: Male

DRUGS (2)
  1. SUBOXONE [Suspect]
     Indication: DRUG DEPENDENCE
     Route: 064
     Dates: start: 201202, end: 201209
  2. BUPRENORPHINE [Suspect]
     Indication: DRUG DEPENDENCE
     Dosage: 16 MG TRANSMAMMARY
     Route: 064
     Dates: start: 201209

REACTIONS (3)
  - Drug withdrawal syndrome neonatal [None]
  - Exposure during breast feeding [None]
  - Foetal exposure during pregnancy [None]
